FAERS Safety Report 10150656 (Version 1)
Quarter: 2014Q2

REPORT INFORMATION
  Report Type: Spontaneous
  Country: US (occurrence: US)
  Receive Date: 20140502
  Receipt Date: 20140502
  Transmission Date: 20141212
  Serious: No
  Sender: FDA-Public Use
  Company Number: US-PFIZER INC-2014120896

PATIENT
  Age: 59 Year
  Sex: Female

DRUGS (4)
  1. XELJANZ [Suspect]
     Indication: RHEUMATOID ARTHRITIS
     Dosage: 5 MG, 2X/DAY
     Route: 048
     Dates: start: 201306
  2. ARAVA [Concomitant]
     Dosage: UNK
  3. IBUPROFEN [Concomitant]
  4. BENAZEPRIL [Concomitant]

REACTIONS (2)
  - Back pain [Unknown]
  - Pain in extremity [Unknown]
